FAERS Safety Report 23101218 (Version 1)
Quarter: 2023Q4

REPORT INFORMATION
  Report Type: Spontaneous
  Country: TH (occurrence: TH)
  Receive Date: 20231024
  Receipt Date: 20231024
  Transmission Date: 20240109
  Serious: Yes (Hospitalization, Other)
  Sender: FDA-Public Use
  Company Number: TH-TAKEDA-2023TUS101013

PATIENT
  Age: 7 Decade
  Sex: Male

DRUGS (2)
  1. COLCHICINE [Suspect]
     Active Substance: COLCHICINE
     Indication: Product used for unknown indication
     Dosage: 0.6 MILLIGRAM, QD
     Route: 065
  2. CLARITHROMYCIN [Suspect]
     Active Substance: CLARITHROMYCIN
     Indication: Product used for unknown indication
     Dosage: 500 MILLIGRAM, BID
     Route: 065

REACTIONS (7)
  - Lactic acidosis [Unknown]
  - Pancytopenia [Unknown]
  - Multiple organ dysfunction syndrome [Unknown]
  - Renal impairment [Unknown]
  - Drug interaction [Unknown]
  - Toxicity to various agents [Unknown]
  - Hepatic function abnormal [None]
